FAERS Safety Report 20877267 (Version 1)
Quarter: 2022Q2

REPORT INFORMATION
  Report Type: Spontaneous
  Country: GR (occurrence: None)
  Receive Date: 20220526
  Receipt Date: 20220526
  Transmission Date: 20220720
  Serious: Yes (Other)
  Sender: FDA-Public Use
  Company Number: 2022A154127

PATIENT
  Age: 53 Year
  Sex: Female

DRUGS (10)
  1. DAPAGLIFLOZIN [Suspect]
     Active Substance: DAPAGLIFLOZIN
     Indication: Chronic kidney disease
     Route: 048
     Dates: start: 202110, end: 20220301
  2. TWYNSTA [Concomitant]
     Active Substance: AMLODIPINE BESYLATE\TELMISARTAN
     Dosage: (80+10)MG/TAB
  3. NEBIVOLOL HYDROCHLORIDE [Concomitant]
     Active Substance: NEBIVOLOL HYDROCHLORIDE
  4. FOLIC ACID [Concomitant]
     Active Substance: FOLIC ACID
  5. ALLOPURINOL [Concomitant]
     Active Substance: ALLOPURINOL
     Dosage: 300 MG X 1
  6. EZETIMIBE\SIMVASTATIN [Concomitant]
     Active Substance: EZETIMIBE\SIMVASTATIN
     Dosage: (10+40)MG
  7. FERROUS SULFATE [Concomitant]
     Active Substance: FERROUS SULFATE
  8. ASPIRIN [Concomitant]
     Active Substance: ASPIRIN
  9. VITAMIN D [Concomitant]
     Active Substance: VITAMIN D NOS
  10. SEVELAMER [Concomitant]
     Active Substance: SEVELAMER
     Dosage: 300 MG X 1

REACTIONS (3)
  - Blood creatinine increased [Recovering/Resolving]
  - Blood urea increased [Recovering/Resolving]
  - Creatinine renal clearance decreased [Recovering/Resolving]
